FAERS Safety Report 13460047 (Version 1)
Quarter: 2017Q2

REPORT INFORMATION
  Report Type: Spontaneous
  Country: US (occurrence: US)
  Receive Date: 20170420
  Receipt Date: 20170420
  Transmission Date: 20170830
  Serious: No
  Sender: FDA-Public Use
  Company Number: US-TEVA-740543ACC

PATIENT
  Age: 73 Year
  Sex: Female

DRUGS (2)
  1. ZOLPIDEM TARTRATE TABLETS [Suspect]
     Active Substance: ZOLPIDEM TARTRATE
     Indication: INSOMNIA
     Dosage: 5 MILLIGRAM DAILY;
     Dates: start: 2016
  2. LORAZEPAM. [Concomitant]
     Active Substance: LORAZEPAM
     Indication: ANXIETY

REACTIONS (2)
  - Daydreaming [Unknown]
  - Paranoia [Unknown]

NARRATIVE: CASE EVENT DATE: 2016
